FAERS Safety Report 15583317 (Version 2)
Quarter: 2018Q4

REPORT INFORMATION
  Report Type: Spontaneous
  Country: LV (occurrence: LV)
  Receive Date: 20181105
  Receipt Date: 20181107
  Transmission Date: 20190205
  Serious: No
  Sender: FDA-Public Use
  Company Number: LV-009507513-1810LVA014114

PATIENT
  Age: 56 Year

DRUGS (2)
  1. KEYTRUDA [Suspect]
     Active Substance: PEMBROLIZUMAB
     Indication: MALIGNANT MELANOMA
     Dosage: 2MG/KG INFUSION EVERY 3 WEEKS
     Dates: end: 201801
  2. KEYTRUDA [Suspect]
     Active Substance: PEMBROLIZUMAB
     Dosage: 2MG/KG INFUSION EVERY 4 WEEKS
     Dates: start: 201806

REACTIONS (5)
  - Inappropriate schedule of product administration [Unknown]
  - Colitis [Unknown]
  - Frequent bowel movements [Recovered/Resolved]
  - Abdominal pain upper [Recovered/Resolved]
  - Functional gastrointestinal disorder [Recovered/Resolved]

NARRATIVE: CASE EVENT DATE: 201712
